FAERS Safety Report 7085777-1 (Version None)
Quarter: 2010Q4

REPORT INFORMATION
  Report Type: 
  Country: None (occurrence: None)
  Receive Date: 20101105
  Receipt Date: 20101027
  Transmission Date: 20110411
  Serious: Yes (Hospitalization, Other)
  Sender: FDA-Public Use
  Company Number: DE-ROCHE-705848

PATIENT
  Sex: Female

DRUGS (28)
  1. MYCOPHENOLATE MOFETIL [Suspect]
     Indication: TRANSPLANT
     Dosage: DATE OF LAST DOSE PRIOR TO SAE: 13 MAY 2010, FREQUENCY REPORTED AS: 1-0-1.
     Route: 048
     Dates: start: 20100430
  2. MYCOPHENOLATE MOFETIL [Suspect]
     Dosage: DATE OF LAST DOSE PRIOR TO SAE: 26 MAY 2010, FREQUENCY REPORTED AS: 1-0-1.
     Route: 048
     Dates: start: 20100501
  3. BASILIXIMAB [Suspect]
     Indication: TRANSPLANT
     Dosage: DOSAGE FORM: LIQUID, DATE OF LAST DOSE PRIOR TO SAE: 04 MAY 2010, FREQUENCY REPORTED AS: 1-0-0
     Route: 042
     Dates: start: 20100430
  4. BASILIXIMAB [Suspect]
     Dosage: DATE OF LAST DOSE PRIOR TO SAE: 01 MAY 2010, FREQUENCY REPORTED AS: 1-0-0.DOSAGE FORM: LIQUID
     Route: 042
     Dates: start: 20100501
  5. TACROLIMUS [Suspect]
     Indication: TRANSPLANT
     Dosage: DATE OF LAST DOSE PRIOR TO SAE: 13 MAY 2010, FREQUENCY REPORTED AS: 1-0-0
     Route: 048
     Dates: start: 20100430
  6. TACROLIMUS [Suspect]
     Dosage: DATE OF LAST DOSE PRIOR TO SAE: 26 MAY 2010, FREQUENCY REPORTED AS: 1-0-0
     Route: 048
     Dates: start: 20100501
  7. PREDNISOLONE [Suspect]
     Indication: TRANSPLANT
     Dosage: LAST DOSE PRIOR TO SAE: 07 MAY 2010. FREQUENCY REPORTED AS 1-0-0
     Route: 048
     Dates: start: 20100430
  8. PREDNISOLONE [Suspect]
     Dosage: DATE OF LAST DOSE PRIOR TO SAE: 09 MAY 2010, FREQUENCY REPORTED AS: 1-0-0
     Route: 048
     Dates: start: 20100501
  9. METOPROLOL SUCCINATE [Concomitant]
     Indication: HYPERTENSION
     Dates: start: 20100501, end: 20100501
  10. METOPROLOL SUCCINATE [Concomitant]
     Dates: start: 20100502
  11. VALCYTE [Concomitant]
     Dates: start: 20100503
  12. COTRIM [Concomitant]
     Dates: start: 20100503
  13. PANTOPRAZOLE SODIUM [Concomitant]
     Dosage: INDICATION: PROPHYLAXIS OF STOMACH ACHE
     Dates: start: 20100501
  14. AMPHOTERICIN B [Concomitant]
     Dosage: INDICATION: CANDIDA INFECTION PROPHYLAXIS
     Dates: start: 20100501, end: 20100522
  15. CARMEN [Concomitant]
     Indication: HYPERTENSION
     Dates: start: 20100502
  16. NEPRESOL [Concomitant]
     Indication: HYPERTENSION
     Dates: start: 20100505
  17. AMLODIPINE [Concomitant]
     Indication: HYPERTENSION
     Dates: start: 20100501, end: 20100501
  18. GLYCILAX [Concomitant]
     Indication: CONSTIPATION
     Dates: start: 20100503, end: 20100503
  19. LAXANS [Concomitant]
     Indication: CONSTIPATION
     Dates: start: 20100503, end: 20100503
  20. CIPROFLOXACIN [Concomitant]
     Indication: URINARY TRACT INFECTION
     Dates: start: 20100507, end: 20100527
  21. CPS PULVER [Concomitant]
     Dates: start: 20100525, end: 20100525
  22. ZOPICLON [Concomitant]
     Indication: SLEEP DISORDER
     Dates: start: 20100509, end: 20100518
  23. NOVALGIN [Concomitant]
     Dates: start: 20100507, end: 20100513
  24. MAGNESIUM [Concomitant]
     Dates: start: 20100512, end: 20100527
  25. FERROUS SULFATE TAB [Concomitant]
     Dates: start: 20100707
  26. HCT [Concomitant]
     Dates: start: 20100915
  27. STILNOX [Concomitant]
     Indication: SLEEP DISORDER
     Dates: start: 20100601, end: 20100601
  28. CATAPRESAN [Concomitant]
     Dates: start: 20100601, end: 20100601

REACTIONS (2)
  - BLOOD CREATININE INCREASED [None]
  - TRANSPLANT REJECTION [None]
